FAERS Safety Report 12824630 (Version 2)
Quarter: 2016Q4

REPORT INFORMATION
  Report Type: Report from Study
  Country: MX (occurrence: MX)
  Receive Date: 20161007
  Receipt Date: 20161024
  Transmission Date: 20170207
  Serious: Yes (Other)
  Sender: FDA-Public Use
  Company Number: MX-BAYER-2016-187702

PATIENT
  Sex: Male

DRUGS (1)
  1. KOGENATE FS [Suspect]
     Active Substance: ANTIHEMOPHILIC FACTOR, HUMAN RECOMBINANT

REACTIONS (12)
  - Joint injury [Recovered/Resolved]
  - Oedema peripheral [Recovered/Resolved]
  - Osteolysis [Not Recovered/Not Resolved]
  - Impaired healing [None]
  - Wound haemorrhage [Not Recovered/Not Resolved]
  - Soft tissue neoplasm [Not Recovered/Not Resolved]
  - Subcutaneous haematoma [Recovered/Resolved]
  - Anti factor VIII antibody positive [None]
  - Joint injury [Not Recovered/Not Resolved]
  - Wound [Not Recovered/Not Resolved]
  - Haemophilic pseudotumour [Not Recovered/Not Resolved]
  - Obstruction [Not Recovered/Not Resolved]

NARRATIVE: CASE EVENT DATE: 20160515
